FAERS Safety Report 4280269-7 (Version None)
Quarter: 2004Q1

REPORT INFORMATION
  Report Type: 
  Country: None (occurrence: None)
  Receive Date: 20040126
  Receipt Date: 20040108
  Transmission Date: 20041129
  Serious: Yes (Death, Hospitalization)
  Sender: FDA-Public Use
  Company Number: DSA_80512_2004

PATIENT
  Sex: Female

DRUGS (6)
  1. XYREM [Suspect]
     Dosage: 2.35 G TWICE NIGHTLY PO
     Route: 048
  2. ADDERALL 10 [Concomitant]
  3. VALIUM [Concomitant]
  4. METHADONE HCL [Concomitant]
  5. FLEXERIL [Concomitant]
  6. SEROQUEL [Concomitant]

REACTIONS (5)
  - BRAIN DAMAGE [None]
  - CARDIAC ARREST [None]
  - COMA [None]
  - THERAPEUTIC AGENT URINE POSITIVE [None]
  - URINE AMPHETAMINE POSITIVE [None]
